FAERS Safety Report 17519133 (Version 1)
Quarter: 2020Q1

REPORT INFORMATION
  Report Type: Spontaneous
  Country: GB (occurrence: GB)
  Receive Date: 20200310
  Receipt Date: 20200310
  Transmission Date: 20200409
  Serious: Yes (Life-Threatening)
  Sender: FDA-Public Use
  Company Number: GB-TEVA-2020-GB-1196154

PATIENT
  Age: 30 Year
  Sex: Female
  Weight: 85 kg

DRUGS (10)
  1. PROCHLORPERAZINE. [Concomitant]
     Active Substance: PROCHLORPERAZINE
     Dosage: 1 DOSAGE FORMS
     Dates: start: 20200114
  2. FLUCLOXACILLIN [Concomitant]
     Active Substance: FLUCLOXACILLIN
     Dosage: 1 DOSAGE FORM
     Dates: start: 20191128, end: 20191205
  3. IBUPROFEN. [Concomitant]
     Active Substance: IBUPROFEN
     Dosage: 1 DOSAGE FORMS
     Dates: start: 20200114
  4. DULOXETINE. [Concomitant]
     Active Substance: DULOXETINE
     Dosage: 1 DOSAGE FORM
     Dates: start: 20191118, end: 20191224
  5. LOPERAMIDE [Concomitant]
     Active Substance: LOPERAMIDE
     Dosage: VARIABLE DOSE
     Dates: start: 20200114
  6. MEBEVERINE HYDROCHLORIDE [Concomitant]
     Active Substance: MEBEVERINE HYDROCHLORIDE
     Dosage: 1 DOSAGE FORMS
     Dates: start: 20200114
  7. HALOPERIDOL. [Suspect]
     Active Substance: HALOPERIDOL
     Route: 065
     Dates: start: 20200115
  8. PARACETAMOL [Concomitant]
     Active Substance: ACETAMINOPHEN
     Dosage: 1-2
     Dates: start: 20200114
  9. BENZOYL PEROXIDE. [Concomitant]
     Active Substance: BENZOYL PEROXIDE
     Dosage: USE AS DIRECTED
     Dates: start: 20191118, end: 20191119
  10. METHADONE [Concomitant]
     Active Substance: METHADONE HYDROCHLORIDE
     Dosage: 80 ML
     Dates: start: 20200115

REACTIONS (1)
  - Eyeball avulsion [Recovered/Resolved]

NARRATIVE: CASE EVENT DATE: 20200115
